FAERS Safety Report 5245926-4 (Version None)
Quarter: 2007Q1

REPORT INFORMATION
  Report Type: 
  Country: None (occurrence: None)
  Receive Date: 20070220
  Receipt Date: 20070213
  Transmission Date: 20070707
  Serious: Yes (Hospitalization)
  Sender: FDA-Public Use
  Company Number: 152057ISR

PATIENT
  Age: 61 Year
  Sex: Female

DRUGS (3)
  1. CLARITHROMYCIN [Suspect]
     Indication: CAMPYLOBACTER INFECTION
     Dosage: 1000 MG (500 MG,2 IN 1 D)
     Route: 048
     Dates: start: 20060416, end: 20060422
  2. OMEPRAZOLE [Suspect]
     Indication: DUODENAL ULCER
     Dosage: 40 MG (20 MG,2 IN 1 D)
     Route: 048
     Dates: start: 20060417, end: 20060425
  3. PANTOPRAZOLE SODIUM [Suspect]
     Indication: DUODENAL ULCER
     Dosage: 192 MG (8 MG,1 IN 1 HR)
     Route: 042
     Dates: start: 20060414, end: 20060417

REACTIONS (1)
  - NEPHRITIS INTERSTITIAL [None]
